FAERS Safety Report 20740893 (Version 2)
Quarter: 2022Q2

REPORT INFORMATION
  Report Type: Report from Study
  Country: TW (occurrence: None)
  Receive Date: 20220422
  Receipt Date: 20220425
  Transmission Date: 20220721
  Serious: Yes (Hospitalization)
  Sender: FDA-Public Use
  Company Number: TW-ROCHE-3078517

PATIENT

DRUGS (4)
  1. GLOFITAMAB [Suspect]
     Active Substance: GLOFITAMAB
     Indication: Diffuse large B-cell lymphoma
     Dosage: ON 14/APR/2022, THE PATIENT RECEIVED MOST RECENT DOSE OF GLOFITAMAB AT 2.5 MG PRIOR TO AE/SAE ONSET.
     Route: 042
  2. OBINUTUZUMAB [Suspect]
     Active Substance: OBINUTUZUMAB
     Indication: Diffuse large B-cell lymphoma
     Dosage: ON 07/APR/2022, THE PATIENT RECEIVED MOST RECENT DOSE OF OBINUTUZUMAB AT 1000 MG PRIOR TO AE/SAE ONS
     Route: 042
  3. OXALIPLATIN [Suspect]
     Active Substance: OXALIPLATIN
     Indication: Diffuse large B-cell lymphoma
     Dosage: ON 08/APR/2022, THE PATIENT RECEIVED MOST RECENT DOSE OF OXALIPLATIN AT 160 MG PRIOR TO AE/SAE ONSET
     Route: 042
  4. GEMCITABINE [Suspect]
     Active Substance: GEMCITABINE
     Indication: Diffuse large B-cell lymphoma
     Dosage: ON 08/APR/2022, THE PATIENT RECEIVED MOST RECENT DOSE OF GEMICITABINE AT 1600 MG PRIOR TO AE/SAE ONS
     Route: 042

REACTIONS (1)
  - Cytokine release syndrome [Recovered/Resolved]

NARRATIVE: CASE EVENT DATE: 20220414
